FAERS Safety Report 17792069 (Version 2)
Quarter: 2020Q3

REPORT INFORMATION
  Report Type: Report from Study
  Country: None (occurrence: US)
  Receive Date: 20200515
  Receipt Date: 20200703
  Transmission Date: 20201102
  Serious: Yes (Hospitalization)
  Sender: FDA-Public Use
  Company Number: US-ABBVIE-20K-163-3381713-00

PATIENT
  Sex: Male
  Weight: 115.32 kg

DRUGS (4)
  1. RINVOQ [Suspect]
     Active Substance: UPADACITINIB
     Indication: RHEUMATOID ARTHRITIS
     Route: 048
     Dates: start: 20200103, end: 202004
  2. CARVEDILOL. [Concomitant]
     Active Substance: CARVEDILOL
     Indication: BLOOD PRESSURE MEASUREMENT
     Dates: end: 2020
  3. OMEPRAZOLE. [Concomitant]
     Active Substance: OMEPRAZOLE
     Indication: DYSPEPSIA
  4. GABAPENTIN. [Concomitant]
     Active Substance: GABAPENTIN
     Indication: NERVE INJURY

REACTIONS (9)
  - Pleurisy [Recovering/Resolving]
  - Panic attack [Not Recovered/Not Resolved]
  - Pain [Recovering/Resolving]
  - Pneumonia [Recovering/Resolving]
  - Blood pressure increased [Recovered/Resolved]
  - Bone contusion [Recovering/Resolving]
  - Hypotension [Not Recovered/Not Resolved]
  - Viral infection [Recovering/Resolving]
  - Drug ineffective [Not Recovered/Not Resolved]

NARRATIVE: CASE EVENT DATE: 2020
